FAERS Safety Report 9202897 (Version 1)
Quarter: 2013Q2

REPORT INFORMATION
  Report Type: Spontaneous
  Country: US (occurrence: US)
  Receive Date: 20130402
  Receipt Date: 20130402
  Transmission Date: 20140414
  Serious: No
  Sender: FDA-Public Use
  Company Number: US-BIOGENIDEC-2012BI009513

PATIENT
  Age: 59 Year
  Sex: Female
  Weight: 58 kg

DRUGS (8)
  1. AVONEX [Suspect]
     Indication: PRODUCT USED FOR UNKNOWN INDICATION
  2. AMPYRA [Concomitant]
     Indication: GAIT DISTURBANCE
     Dates: start: 201110
  3. LISINOPRIL [Concomitant]
  4. PERCOCET [Concomitant]
  5. ZANAFLEX [Concomitant]
  6. FLUOXETINE [Concomitant]
  7. BACLOFEN [Concomitant]
  8. TRAMADOL [Concomitant]

REACTIONS (11)
  - Memory impairment [Unknown]
  - Gait disturbance [Unknown]
  - Muscle twitching [Unknown]
  - Drug dose omission [Unknown]
  - Vomiting [Recovered/Resolved]
  - Nausea [Not Recovered/Not Resolved]
  - Multiple sclerosis relapse [Unknown]
  - Muscle spasms [Not Recovered/Not Resolved]
  - Malaise [Unknown]
  - Headache [Unknown]
  - Dizziness [Unknown]
